FAERS Safety Report 9434640 (Version 1)
Quarter: 2013Q3

REPORT INFORMATION
  Report Type: Spontaneous
  Country: US (occurrence: US)
  Receive Date: 20130801
  Receipt Date: 20130801
  Transmission Date: 20140515
  Serious: Yes (Hospitalization)
  Sender: FDA-Public Use
  Company Number: US-BAYER-2013-090011

PATIENT
  Age: 16 Year
  Sex: Female
  Weight: 52.15 kg

DRUGS (7)
  1. YAZ [Suspect]
  2. VICODIN [Concomitant]
     Indication: DEEP VEIN THROMBOSIS
  3. VICODIN [Concomitant]
     Indication: PULMONARY EMBOLISM
  4. NAPROXEN [Concomitant]
  5. LEVAQUIN [Concomitant]
  6. AMOXICILLIN [Concomitant]
  7. CLARITHROMYCIN [Concomitant]

REACTIONS (6)
  - Deep vein thrombosis [None]
  - Pulmonary embolism [None]
  - Pelvic venous thrombosis [Recovering/Resolving]
  - Deep vein thrombosis [Recovering/Resolving]
  - Deep vein thrombosis [None]
  - Pain in extremity [None]
